FAERS Safety Report 9457724 (Version 1)
Quarter: 2013Q3

REPORT INFORMATION
  Report Type: Spontaneous
  Country: US (occurrence: None)
  Receive Date: 20130812
  Receipt Date: 20130812
  Transmission Date: 20140515
  Serious: Yes (Life-Threatening, Hospitalization, Disabling)
  Sender: FDA-Public Use
  Company Number: None

PATIENT
  Age: 22 Year
  Sex: Female

DRUGS (1)
  1. MIRENA IUD [Suspect]
     Dates: start: 20100731, end: 20101107

REACTIONS (6)
  - Device malfunction [None]
  - Pain [None]
  - Menorrhagia [None]
  - Pelvic pain [None]
  - Feeling abnormal [None]
  - Menstrual disorder [None]
